FAERS Safety Report 5937979-2 (Version None)
Quarter: 2008Q4

REPORT INFORMATION
  Report Type: 
  Country: None (occurrence: None)
  Receive Date: 20081031
  Receipt Date: 20081020
  Transmission Date: 20090506
  Serious: Yes (Disabling, Other)
  Sender: FDA-Public Use
  Company Number: US-PFIZER INC-2008074114

PATIENT
  Sex: Female

DRUGS (1)
  1. CHANTIX [Suspect]

REACTIONS (6)
  - COMMUNICATION DISORDER [None]
  - CONFUSIONAL STATE [None]
  - DISABILITY [None]
  - FEELING ABNORMAL [None]
  - MOBILITY DECREASED [None]
  - SUICIDAL IDEATION [None]
